FAERS Safety Report 7797985-2 (Version None)
Quarter: 2011Q4

REPORT INFORMATION
  Report Type: 
  Country: None (occurrence: None)
  Receive Date: 20111005
  Receipt Date: 20110926
  Transmission Date: 20120403
  Serious: Yes (Life-Threatening, Hospitalization)
  Sender: FDA-Public Use
  Company Number: FI-GLAXOSMITHKLINE-B0744434A

PATIENT
  Sex: Male

DRUGS (2)
  1. BLOOD PRESSURE MEDICATION [Concomitant]
     Route: 065
  2. ZANTAC [Suspect]
     Indication: DYSPEPSIA
     Dosage: 300MG UNKNOWN
     Route: 048

REACTIONS (3)
  - MALAISE [None]
  - CARDIAC ARREST [None]
  - NERVOUS SYSTEM DISORDER [None]
